FAERS Safety Report 12489260 (Version 1)
Quarter: 2016Q2

REPORT INFORMATION
  Report Type: Spontaneous
  Country: US (occurrence: US)
  Receive Date: 20160622
  Receipt Date: 20160622
  Transmission Date: 20160815
  Serious: Yes (Other)
  Sender: FDA-Public Use
  Company Number: US-LPDUSPRD-20160529

PATIENT
  Age: 22 Year
  Sex: Female

DRUGS (1)
  1. LIDOCAINE HCL INJECTION, USP (0517-9402-01) [Suspect]
     Active Substance: LIDOCAINE HYDROCHLORIDE
     Dosage: 360MG OR 5 MG/KG IN TOTAL
     Route: 042

REACTIONS (1)
  - Hoigne^s syndrome [Unknown]
